FAERS Safety Report 5444876-8 (Version None)
Quarter: 2007Q3

REPORT INFORMATION
  Report Type: 
  Country: None (occurrence: None)
  Receive Date: 20070824
  Receipt Date: 20070813
  Transmission Date: 20080115
  Serious: Yes (Hospitalization)
  Sender: FDA-Public Use
  Company Number: B0483103A

PATIENT
  Age: 38 Year
  Sex: Male

DRUGS (3)
  1. FLUTICASONE PROPIONATE [Suspect]
     Dosage: INHALED
     Route: 055
  2. TRIAMCINOLONE ACETONIDE [Suspect]
     Dosage: 55 MCG TWICE PER DAY / INTRANASAL
  3. SALMETEROL XINAFOATE [Concomitant]

REACTIONS (1)
  - OSTEONECROSIS [None]
